FAERS Safety Report 6615412-5 (Version None)
Quarter: 2010Q1

REPORT INFORMATION
  Report Type: 
  Country: None (occurrence: None)
  Receive Date: 20100305
  Receipt Date: 20091111
  Transmission Date: 20100710
  Serious: No
  Sender: FDA-Public Use
  Company Number: A0817060A

PATIENT
  Sex: Male
  Weight: 90 kg

DRUGS (18)
  1. REQUIP [Suspect]
     Indication: PARKINSON'S DISEASE
     Dosage: 1MG THREE TIMES PER DAY
     Route: 048
     Dates: start: 20040101, end: 20080101
  2. ROPINIROLE HYDROCHLORIDE [Suspect]
     Indication: PARKINSON'S DISEASE
     Dosage: 1MG THREE TIMES PER DAY
     Route: 048
     Dates: start: 20080101, end: 20080101
  3. SINEMET [Concomitant]
     Dates: start: 20071001
  4. MYSOLINE [Concomitant]
  5. ULTRAM [Concomitant]
  6. PRAVACHOL [Concomitant]
  7. CLONAZEPAM [Concomitant]
  8. METOPROLOL TARTRATE [Concomitant]
  9. ELAVIL [Concomitant]
  10. ZYRTEC [Concomitant]
  11. ASPIRIN [Concomitant]
  12. CELEXA [Concomitant]
  13. TRAZODONE HCL [Concomitant]
  14. LORTAB [Concomitant]
  15. SINGULAIR [Concomitant]
  16. HYDROCHLOROTHIAZIDE [Concomitant]
  17. CYMBALTA [Concomitant]
  18. AMITRIPTYLINE HCL [Concomitant]

REACTIONS (1)
  - ADVERSE EVENT [None]
